FAERS Safety Report 6385892-1 (Version None)
Quarter: 2009Q4

REPORT INFORMATION
  Report Type: 
  Country: None (occurrence: None)
  Receive Date: 20091002
  Receipt Date: 20090702
  Transmission Date: 20100525
  Serious: No
  Sender: FDA-Public Use
  Company Number: US-ASTRAZENECA-2009UW04659

PATIENT
  Age: 57 Year
  Sex: Female
  Weight: 52.2 kg

DRUGS (2)
  1. ARIMIDEX [Suspect]
     Indication: BREAST CANCER
     Route: 048
     Dates: start: 20090114
  2. BONIVA [Concomitant]

REACTIONS (2)
  - CONSTIPATION [None]
  - WHITE BLOOD CELL COUNT DECREASED [None]
